FAERS Safety Report 16662625 (Version 1)
Quarter: 2019Q3

REPORT INFORMATION
  Report Type: Report from Study
  Country: US (occurrence: US)
  Receive Date: 20190802
  Receipt Date: 20190802
  Transmission Date: 20191004
  Serious: No
  Sender: FDA-Public Use
  Company Number: US-EXELIXIS-CABO-18017747

PATIENT
  Age: 81 Year
  Sex: Male

DRUGS (12)
  1. ATORVASTATIN CALCIUM. [Concomitant]
     Active Substance: ATORVASTATIN CALCIUM
  2. METOPROLOL TARTRATE. [Concomitant]
     Active Substance: METOPROLOL TARTRATE
  3. FINASTERIDE. [Concomitant]
     Active Substance: FINASTERIDE
  4. VITAMIN D3 [Concomitant]
     Active Substance: CHOLECALCIFEROL
  5. WARFARIN [Concomitant]
     Active Substance: WARFARIN
  6. CABOMETYX [Suspect]
     Active Substance: CABOZANTINIB S-MALATE
     Indication: RENAL CANCER
     Dosage: 40 MG, QD
     Route: 048
     Dates: start: 20181004
  7. LOVASTATIN. [Concomitant]
     Active Substance: LOVASTATIN
  8. COLACE [Concomitant]
     Active Substance: DOCUSATE SODIUM
  9. DIURETICS [Suspect]
     Active Substance: UNSPECIFIED INGREDIENT
  10. HYDROCHLOROTHIAZIDE. [Concomitant]
     Active Substance: HYDROCHLOROTHIAZIDE
  11. VITAMIN B12 [Concomitant]
     Active Substance: CYANOCOBALAMIN
  12. HYDROCODONE BITARTRATE AND ACETAMINOPHEN [Concomitant]
     Active Substance: ACETAMINOPHEN\HYDROCODONE BITARTRATE

REACTIONS (9)
  - Rhinorrhoea [Recovering/Resolving]
  - Nocturia [Unknown]
  - Orthopnoea [Unknown]
  - Ageusia [Unknown]
  - Nasal congestion [Recovering/Resolving]
  - Lip disorder [Unknown]
  - Spinal pain [Unknown]
  - Oral pain [Recovering/Resolving]
  - Diarrhoea [Unknown]

NARRATIVE: CASE EVENT DATE: 2018
